FAERS Safety Report 6021890-5 (Version None)
Quarter: 2008Q4

REPORT INFORMATION
  Report Type: 
  Country: None (occurrence: None)
  Receive Date: 20081229
  Receipt Date: 20081222
  Transmission Date: 20090506
  Serious: Yes (Death)
  Sender: FDA-Public Use
  Company Number: IT-ABBOTT-08P-083-0494879-00

PATIENT
  Age: 58 Year
  Sex: Female

DRUGS (2)
  1. ADALIMUMAB [Suspect]
     Indication: RHEUMATOID ARTHRITIS
     Dosage: NOT REPORTED
  2. LEFLUNOMIDE [Concomitant]
     Indication: RHEUMATOID ARTHRITIS
     Dosage: NOT REPORTED

REACTIONS (1)
  - LUNG INFECTION [None]
